FAERS Safety Report 11388383 (Version 4)
Quarter: 2015Q4

REPORT INFORMATION
  Report Type: Report from Study
  Country: KR (occurrence: KR)
  Receive Date: 20150817
  Receipt Date: 20151210
  Transmission Date: 20160304
  Serious: Yes (Hospitalization, Other)
  Sender: FDA-Public Use
  Company Number: KR-AMGEN-KORNI2015083997

PATIENT
  Age: 57 Year
  Sex: Male
  Weight: 73 kg

DRUGS (10)
  1. FURIX [Concomitant]
     Active Substance: FUROSEMIDE
     Dosage: UNK
     Dates: start: 20130214
  2. LODIEN [Concomitant]
     Dosage: UNK
     Dates: start: 20130930
  3. CRESTOR [Concomitant]
     Active Substance: ROSUVASTATIN CALCIUM
     Dosage: UNK
     Dates: start: 20090424
  4. ALBUMAX [Concomitant]
     Dosage: UNK
     Dates: start: 20141112
  5. ALLOPURINOL. [Concomitant]
     Active Substance: ALLOPURINOL
     Dosage: UNK
     Dates: start: 20141029
  6. IVABRADINE [Suspect]
     Active Substance: IVABRADINE
     Indication: ANGINA PECTORIS
     Dosage: 5 MG, BID
     Route: 065
     Dates: start: 20150128, end: 20150707
  7. CLOPIRIN [Concomitant]
     Dosage: UNK
     Dates: start: 20130930
  8. VARIDASE [Concomitant]
     Dosage: UNK
     Dates: start: 20150129
  9. DILATREND [Concomitant]
     Active Substance: CARVEDILOL
     Dosage: 12.5 MG, DAILY
     Dates: start: 20060509
  10. IRCODON [Concomitant]
     Dosage: UNK
     Dates: start: 20141231

REACTIONS (2)
  - Bradycardia [Recovered/Resolved]
  - Cardiac failure acute [Recovered/Resolved]

NARRATIVE: CASE EVENT DATE: 20150617
